FAERS Safety Report 25170165 (Version 2)
Quarter: 2025Q2

REPORT INFORMATION
  Report Type: Spontaneous
  Country: AU (occurrence: AU)
  Receive Date: 20250407
  Receipt Date: 20250422
  Transmission Date: 20250716
  Serious: No
  Sender: BEIGENE
  Company Number: AU-BEIGENE-BGN-2025-005082

PATIENT

DRUGS (1)
  1. BRUKINSA [Suspect]
     Active Substance: ZANUBRUTINIB
     Indication: Product used for unknown indication

REACTIONS (1)
  - No adverse event [Unknown]
